FAERS Safety Report 5939359-2 (Version None)
Quarter: 2008Q4

REPORT INFORMATION
  Report Type: 
  Country: None (occurrence: None)
  Receive Date: 20081103
  Receipt Date: 20081029
  Transmission Date: 20090506
  Serious: Yes (Hospitalization)
  Sender: FDA-Public Use
  Company Number: US-B.I. PHARMACEUTICALS,INC./RIDGEFIELD-2008-BP-07405BP

PATIENT
  Age: 62 Year
  Sex: Male

DRUGS (4)
  1. CATAPRES-TTS-1 [Suspect]
     Indication: HYPERTENSION
     Dosage: .1MG
     Route: 061
     Dates: start: 20080401
  2. GABAPENTIN [Concomitant]
  3. NORTRIPTYLINE HCL [Concomitant]
  4. VIAGRA [Concomitant]

REACTIONS (10)
  - ANORGASMIA [None]
  - BALANCE DISORDER [None]
  - CONFUSIONAL STATE [None]
  - DECREASED APPETITE [None]
  - HYPERTENSION [None]
  - HYPOTENSION [None]
  - IRRITABILITY [None]
  - MUSCULAR WEAKNESS [None]
  - SLEEP DISORDER [None]
  - VARICOSE VEIN RUPTURED [None]
